FAERS Safety Report 8311304-4 (Version None)
Quarter: 2012Q2

REPORT INFORMATION
  Report Type: 
  Country: None (occurrence: None)
  Receive Date: 20120425
  Receipt Date: 20120415
  Transmission Date: 20120825
  Serious: Yes (Congenital Anomaly)
  Sender: FDA-Public Use
  Company Number: US-VIIV HEALTHCARE LIMITED-A0974887A

PATIENT
  Sex: Male
  Weight: 1.2 kg

DRUGS (3)
  1. RETROVIR [Suspect]
     Indication: ANTIRETROVIRAL THERAPY
     Dosage: 2MGKH PER DAY
     Route: 064
     Dates: start: 20110709, end: 20110709
  2. RETROVIR [Suspect]
     Dosage: 1MGKH PER DAY
     Route: 064
     Dates: start: 20110709, end: 20110709
  3. TRIZIVIR [Suspect]
     Indication: ANTIRETROVIRAL THERAPY
     Dosage: 2TAB PER DAY
     Route: 064
     Dates: start: 20110516

REACTIONS (4)
  - CARDIAC MURMUR [None]
  - FOETAL EXPOSURE DURING PREGNANCY [None]
  - INTRAVENTRICULAR HAEMORRHAGE NEONATAL [None]
  - PREMATURE BABY [None]
